FAERS Safety Report 8114107-9 (Version None)
Quarter: 2012Q1

REPORT INFORMATION
  Report Type: 
  Country: None (occurrence: None)
  Receive Date: 20120203
  Receipt Date: 20120125
  Transmission Date: 20120608
  Serious: Yes (Other)
  Sender: FDA-Public Use
  Company Number: US-ASTRAZENECA-2012SE05474

PATIENT
  Age: 71 Year
  Sex: Female

DRUGS (6)
  1. NOVOLIN N [Concomitant]
  2. HUMALOG [Concomitant]
  3. PRILOSEC OTC [Suspect]
     Route: 048
  4. VASOTEC [Concomitant]
  5. ATIVAN [Concomitant]
  6. PROZAC [Concomitant]

REACTIONS (12)
  - GASTRIC HAEMORRHAGE [None]
  - RECTOCELE [None]
  - BREAST MASS [None]
  - CONSTIPATION [None]
  - ANAEMIA [None]
  - CYSTOCELE [None]
  - GASTRIC ANTRAL VASCULAR ECTASIA [None]
  - ASTHENIA [None]
  - CATARACT [None]
  - BLEEDING VARICOSE VEIN [None]
  - FATIGUE [None]
  - FOOD CRAVING [None]
